FAERS Safety Report 9236986 (Version 3)
Quarter: 2013Q2

REPORT INFORMATION
  Report Type: Report from Study
  Country: JP (occurrence: JP)
  Receive Date: 20130417
  Receipt Date: 20130531
  Transmission Date: 20140414
  Serious: Yes (Hospitalization)
  Sender: FDA-Public Use
  Company Number: JP-AMGEN-JPNCT2013026143

PATIENT
  Age: 68 Year
  Sex: Female

DRUGS (22)
  1. DARBEPOETIN ALFA [Suspect]
     Indication: NEPHROGENIC ANAEMIA
     Dosage: 30 MUG, Q4WK
     Route: 058
     Dates: start: 20101127, end: 20101225
  2. DARBEPOETIN ALFA [Suspect]
     Dosage: 30 MUG, QD
     Route: 058
     Dates: start: 20110115, end: 20110115
  3. DARBEPOETIN ALFA [Suspect]
     Dosage: 40 MUG, Q4WK
     Route: 058
     Dates: start: 20110212, end: 20110604
  4. DARBEPOETIN ALFA [Suspect]
     Dosage: 40 MUG, QD
     Route: 058
     Dates: start: 20110716, end: 20110716
  5. DARBEPOETIN ALFA [Suspect]
     Dosage: 40 MUG, QWK
     Route: 058
     Dates: start: 20110816, end: 20110816
  6. DARBEPOETIN ALFA [Suspect]
     Dosage: 40 MUG, QD
     Route: 058
     Dates: start: 20110903, end: 20110903
  7. DARBEPOETIN ALFA [Suspect]
     Dosage: 60 MUG, QD
     Route: 058
     Dates: start: 20111001, end: 20111001
  8. DARBEPOETIN ALFA [Suspect]
     Dosage: 60 MUG, QD
     Route: 058
     Dates: start: 20111105, end: 20111105
  9. DARBEPOETIN ALFA [Suspect]
     Dosage: 60 MUG, QD
     Route: 058
     Dates: start: 20111207, end: 20111207
  10. DARBEPOETIN ALFA [Suspect]
     Dosage: 60 MUG, QD
     Route: 058
     Dates: start: 20120107, end: 20120107
  11. DARBEPOETIN ALFA [Suspect]
     Dosage: 30 MUG, Q2WK
     Route: 058
     Dates: start: 20120213, end: 20120421
  12. DARBEPOETIN ALFA [Suspect]
     Dosage: 30 MUG, Q2WK
     Route: 058
     Dates: start: 20120526, end: 20120609
  13. DARBEPOETIN ALFA [Suspect]
     Dosage: 40 MUG, Q4WK
     Route: 058
     Dates: start: 20120707, end: 20120929
  14. DARBEPOETIN ALFA [Suspect]
     Dosage: 60 MUG, Q4WK
     Route: 058
     Dates: start: 20121026, end: 20121122
  15. KREMEZIN [Concomitant]
     Indication: NEPHROSCLEROSIS
     Dosage: UNK
     Route: 048
  16. ZYLORIC [Concomitant]
     Dosage: UNK
     Route: 048
  17. CETAPRIL [Concomitant]
     Dosage: UNK
     Route: 048
  18. CALTAN [Concomitant]
     Dosage: UNK
     Route: 048
  19. SODIUM BICARBONATE [Concomitant]
     Dosage: UNK
     Route: 048
  20. ALFAROL [Concomitant]
     Dosage: UNK
     Route: 048
  21. FERROMIA [Concomitant]
     Dosage: UNK
     Route: 048
  22. FEBURIC [Concomitant]
     Dosage: UNK
     Route: 048

REACTIONS (1)
  - Duodenal ulcer perforation [Recovering/Resolving]
